FAERS Safety Report 21757884 (Version 1)
Quarter: 2022Q4

REPORT INFORMATION
  Report Type: Spontaneous
  Country: US (occurrence: None)
  Receive Date: 20221221
  Receipt Date: 20221221
  Transmission Date: 20230113
  Serious: No
  Sender: FDA-Public Use
  Company Number: US-ROCHE-3080630

PATIENT

DRUGS (3)
  1. ACTIVASE [Suspect]
     Active Substance: ALTEPLASE
     Indication: Thrombolysis
     Dosage: ACTIVASE DRIP AT 1 MG/ HOUR FOR OVER 2-3 DAYS
     Route: 041
  2. ACTIVASE [Suspect]
     Active Substance: ALTEPLASE
  3. HEPARIN [Concomitant]
     Active Substance: HEPARIN SODIUM

REACTIONS (2)
  - Off label use [Unknown]
  - No adverse event [Unknown]
